FAERS Safety Report 8547654-6 (Version None)
Quarter: 2012Q3

REPORT INFORMATION
  Report Type: 
  Country: None (occurrence: None)
  Receive Date: 20120727
  Receipt Date: 20111027
  Transmission Date: 20120928
  Serious: Yes (Life-Threatening, Other)
  Sender: FDA-Public Use
  Company Number: US-ASTRAZENECA-2011SE65334

PATIENT
  Sex: Female

DRUGS (1)
  1. SEROQUEL XR [Suspect]
     Indication: BIPOLAR DISORDER
     Route: 048

REACTIONS (6)
  - DRUG INEFFECTIVE [None]
  - FRUSTRATION [None]
  - SUICIDE ATTEMPT [None]
  - WEIGHT INCREASED [None]
  - RESPIRATORY DISORDER [None]
  - ANXIETY [None]
